FAERS Safety Report 18035019 (Version 7)
Quarter: 2021Q2

REPORT INFORMATION
  Report Type: Report from Study
  Country: None (occurrence: US)
  Receive Date: 20200717
  Receipt Date: 20210414
  Transmission Date: 20210717
  Serious: Yes (Hospitalization, Other)
  Sender: FDA-Public Use
  Company Number: US-ABBVIE-20K-163-3484882-00

PATIENT
  Age: 61 Year
  Sex: Female
  Weight: 64.47 kg

DRUGS (4)
  1. RINVOQ [Suspect]
     Active Substance: UPADACITINIB
     Indication: RHEUMATOID ARTHRITIS
     Route: 048
     Dates: start: 202004, end: 202006
  2. RINVOQ [Suspect]
     Active Substance: UPADACITINIB
     Route: 048
  3. RINVOQ [Suspect]
     Active Substance: UPADACITINIB
     Route: 048
  4. RINVOQ [Suspect]
     Active Substance: UPADACITINIB
     Route: 048
     Dates: start: 20200727

REACTIONS (11)
  - Peripheral nervous system neoplasm [Recovered/Resolved]
  - Spinal column injury [Recovered/Resolved]
  - Rheumatoid arthritis [Not Recovered/Not Resolved]
  - Bone neoplasm [Recovered/Resolved]
  - Cerebral haemorrhage [Unknown]
  - Pain [Not Recovered/Not Resolved]
  - Anosmia [Not Recovered/Not Resolved]
  - Fall [Recovered/Resolved]
  - Head injury [Recovering/Resolving]
  - Sinus disorder [Not Recovered/Not Resolved]
  - Spondylitis [Not Recovered/Not Resolved]

NARRATIVE: CASE EVENT DATE: 2020
